FAERS Safety Report 22526770 (Version 1)
Quarter: 2023Q2

REPORT INFORMATION
  Report Type: Spontaneous
  Country: PT (occurrence: PT)
  Receive Date: 20230606
  Receipt Date: 20230606
  Transmission Date: 20230721
  Serious: Yes (Hospitalization)
  Sender: FDA-Public Use
  Company Number: None

PATIENT
  Age: 82 Year
  Sex: Female

DRUGS (13)
  1. SPIRONOLACTONE [Suspect]
     Active Substance: SPIRONOLACTONE
     Dosage: 100 MG
     Dates: end: 20220715
  2. LASIX [Suspect]
     Active Substance: FUROSEMIDE
     Dosage: 40 MG
     Route: 048
     Dates: end: 20220715
  3. APIXABAN [Concomitant]
     Active Substance: APIXABAN
  4. MIRTAZAPINE [Concomitant]
     Active Substance: MIRTAZAPINE
  5. LETROZOLE [Concomitant]
     Active Substance: LETROZOLE
  6. QUETIAPINE [Concomitant]
     Active Substance: QUETIAPINE
  7. SACUBITRIL\VALSARTAN [Concomitant]
     Active Substance: SACUBITRIL\VALSARTAN
  8. BISOPROLOL [Concomitant]
     Active Substance: BISOPROLOL
  9. ROTIGOTINE [Concomitant]
     Active Substance: ROTIGOTINE
  10. VITERNUM [Concomitant]
     Dosage: 6 MG
  11. RILMENIDINE [Concomitant]
     Active Substance: RILMENIDINE
  12. ESCITALOPRAM [Concomitant]
     Active Substance: ESCITALOPRAM OXALATE
  13. SAFINAMIDE [Concomitant]
     Active Substance: SAFINAMIDE

REACTIONS (4)
  - Acute kidney injury [Recovered/Resolved]
  - Dehydration [Recovered/Resolved]
  - Acidosis [Recovered/Resolved]
  - Hyperkalaemia [Recovered/Resolved]

NARRATIVE: CASE EVENT DATE: 20220713
